FAERS Safety Report 7493432-9 (Version None)
Quarter: 2011Q2

REPORT INFORMATION
  Report Type: 
  Country: None (occurrence: None)
  Receive Date: 20110520
  Receipt Date: 20110428
  Transmission Date: 20111010
  Serious: Yes (Other)
  Sender: FDA-Public Use
  Company Number: US-BAYER-201014513NA

PATIENT
  Age: 22 Year
  Sex: Female
  Weight: 54.422 kg

DRUGS (2)
  1. YASMIN [Suspect]
     Indication: PRODUCT USED FOR UNKNOWN INDICATION
     Route: 048
     Dates: start: 20030101
  2. DROSPIRENONE AND ETHINYL ESTRADIOL [Suspect]
     Indication: PRODUCT USED FOR UNKNOWN INDICATION
     Route: 048
     Dates: start: 20030101

REACTIONS (3)
  - CHOLECYSTITIS [None]
  - CHOLECYSTITIS CHRONIC [None]
  - POST CHOLECYSTECTOMY SYNDROME [None]
